FAERS Safety Report 19835208 (Version 1)
Quarter: 2021Q3

REPORT INFORMATION
  Report Type: Spontaneous
  Country: US (occurrence: US)
  Receive Date: 20210915
  Receipt Date: 20210915
  Transmission Date: 20211014
  Serious: Yes (Other)
  Sender: FDA-Public Use
  Company Number: US-ALEMBIC PHARMACUETICALS LIMITED-2021SCAL000378

PATIENT

DRUGS (3)
  1. MIDODRINE HYDROCHLORIDE. [Suspect]
     Active Substance: MIDODRINE HYDROCHLORIDE
     Indication: SYNCOPE
     Dosage: UNK
     Route: 065
  2. TIZANIDINE HYDROCHLORIDE. [Suspect]
     Active Substance: TIZANIDINE HYDROCHLORIDE
     Indication: MUSCLE SPASMS
     Dosage: 8 MG, QD, ALL 8 MG AT NIGHT
     Route: 065
  3. TIZANIDINE HYDROCHLORIDE. [Suspect]
     Active Substance: TIZANIDINE HYDROCHLORIDE
     Dosage: 4 MG, QD, AT NIGHT
     Route: 065

REACTIONS (9)
  - Syncope [Recovered/Resolved]
  - Somnolence [Unknown]
  - Hypertension [Unknown]
  - Withdrawal hypertension [Unknown]
  - Haemodynamic instability [Unknown]
  - Hypotension [Unknown]
  - Sedation [Unknown]
  - Incorrect dose administered [Unknown]
  - Orthostatic hypotension [Unknown]
